FAERS Safety Report 25523065 (Version 1)
Quarter: 2025Q3

REPORT INFORMATION
  Report Type: Spontaneous
  Country: EU (occurrence: EU)
  Receive Date: 20250707
  Receipt Date: 20250707
  Transmission Date: 20251020
  Serious: Yes (Hospitalization, Other)
  Sender: Atnahs Healthcare
  Company Number: EU-ATNAHS-ATNAHS20250604658

PATIENT
  Age: 73 Year
  Sex: Female

DRUGS (1)
  1. IBANDRONIC ACID [Suspect]
     Active Substance: IBANDRONIC ACID
     Indication: Osteoporosis
     Dosage: 150 MG, 1X/MONTH (TREATMENT THAT WAS MAINTAINED CONTINUOUSLY FOR APPROXIMATELY 20 YEARS, UNTIL OCTOB
     Dates: end: 202210

REACTIONS (1)
  - Atypical femur fracture [Recovering/Resolving]
